FAERS Safety Report 6731747-X (Version None)
Quarter: 2010Q2

REPORT INFORMATION
  Report Type: 
  Country: None (occurrence: None)
  Receive Date: 20100519
  Receipt Date: 20100512
  Transmission Date: 20101027
  Serious: Yes (Congenital Anomaly, Other)
  Sender: FDA-Public Use
  Company Number: US-PFIZER INC-2010060391

PATIENT

DRUGS (4)
  1. VIRACEPT [Suspect]
     Indication: ANTIRETROVIRAL THERAPY
     Route: 064
  2. ZIDOVUDINE [Suspect]
     Indication: ANTIRETROVIRAL THERAPY
     Route: 064
  3. SUSTIVA [Suspect]
     Indication: ANTIRETROVIRAL THERAPY
     Route: 064
  4. EPIVIR [Suspect]
     Indication: ANTIRETROVIRAL THERAPY
     Route: 064

REACTIONS (2)
  - ATRIAL SEPTAL DEFECT [None]
  - DRUG EXPOSURE DURING PREGNANCY [None]
